FAERS Safety Report 8851375 (Version 2)
Quarter: 2013Q1

REPORT INFORMATION
  Report Type: Spontaneous
  Country: FR (occurrence: FR)
  Receive Date: 20121022
  Receipt Date: 20130107
  Transmission Date: 20140127
  Serious: Yes (Hospitalization, Other)
  Sender: FDA-Public Use
  Company Number: FR-AMGEN-FRASP2012066329

PATIENT
  Age: 55 Year
  Sex: Female

DRUGS (15)
  1. ENBREL [Suspect]
     Indication: RHEUMATOID ARTHRITIS
     Dosage: 50 MG, WEEKLY
     Route: 058
     Dates: start: 201205, end: 20120825
  2. ARAVA [Suspect]
     Indication: RHEUMATOID ARTHRITIS
     Dosage: 20 MG, 1X/DAY
     Route: 048
     Dates: start: 201005
  3. CRESTOR [Suspect]
     Indication: DYSLIPIDAEMIA
     Dosage: 5 MG, 1X/DAY
     Route: 048
  4. CRESTOR [Suspect]
     Dosage: 5 MG, WEEKLY
     Route: 048
  5. LANSOPRAZOLE [Suspect]
     Indication: GASTROINTESTINAL DISORDER
     Dosage: 15 MG, 1X/DAY
     Route: 048
  6. LANSOPRAZOLE [Suspect]
     Indication: PROPHYLAXIS AGAINST GASTROINTESTINAL ULCER
  7. SULFARLEM [Suspect]
     Dosage: UNK
     Route: 048
  8. ARTISIAL [Suspect]
     Dosage: UNK
     Route: 048
  9. DAFALGAN [Suspect]
     Dosage: UNK
     Route: 048
  10. KESTINE [Suspect]
     Dosage: UNK
     Route: 048
  11. PROFENID [Suspect]
     Dosage: 100 MG, 1X/DAY
     Route: 048
  12. PROFENID [Suspect]
     Dosage: 100 MG, WEEKLY
     Route: 048
  13. METHOTREXATE [Concomitant]
     Indication: RHEUMATOID ARTHRITIS
     Dosage: 10 MG, UNK
     Dates: start: 2008
  14. METOJECT [Concomitant]
     Indication: RHEUMATOID ARTHRITIS
     Dosage: 20 MG, WEEKLY
     Dates: start: 2010
  15. HUMIRA [Concomitant]
     Indication: RHEUMATOID ARTHRITIS
     Dosage: 40 MG, MONTHLY
     Dates: start: 201203, end: 201203

REACTIONS (2)
  - Vomiting [Unknown]
  - Cough [Not Recovered/Not Resolved]
